FAERS Safety Report 22013937 (Version 1)
Quarter: 2023Q1

REPORT INFORMATION
  Report Type: Spontaneous
  Country: US (occurrence: US)
  Receive Date: 20230221
  Receipt Date: 20230221
  Transmission Date: 20230418
  Serious: Yes (Death, Other)
  Sender: FDA-Public Use
  Company Number: US-BIOVITRUM-2023US02653

PATIENT
  Sex: Female

DRUGS (2)
  1. SYNAGIS [Suspect]
     Active Substance: PALIVIZUMAB
     Indication: Atrial septal defect
     Dates: start: 202301, end: 20230210
  2. SYNAGIS [Suspect]
     Active Substance: PALIVIZUMAB
     Indication: Atelectasis

REACTIONS (1)
  - Death [Fatal]
